FAERS Safety Report 12311979 (Version 4)
Quarter: 2016Q3

REPORT INFORMATION
  Report Type: Spontaneous
  Country: US (occurrence: US)
  Receive Date: 20160427
  Receipt Date: 20160919
  Transmission Date: 20161109
  Serious: Yes (Hospitalization)
  Sender: FDA-Public Use
  Company Number: US-BAUSCH-BL-2016-009575

PATIENT
  Age: 74 Year
  Sex: Female
  Weight: 79.45 kg

DRUGS (2)
  1. GABAPENTIN. [Concomitant]
     Active Substance: GABAPENTIN
     Indication: PRODUCT USED FOR UNKNOWN INDICATION
  2. XIFAXAN [Suspect]
     Active Substance: RIFAXIMIN
     Indication: HEPATIC ENCEPHALOPATHY
     Route: 048
     Dates: start: 2015

REACTIONS (12)
  - Gastric dilatation [Recovering/Resolving]
  - Peripheral swelling [Recovering/Resolving]
  - Vertigo [Not Recovered/Not Resolved]
  - Hospitalisation [Unknown]
  - Chest pain [Recovering/Resolving]
  - Asthenia [Not Recovered/Not Resolved]
  - Fall [Unknown]
  - Body temperature increased [Recovering/Resolving]
  - Papule [Recovering/Resolving]
  - Neck pain [Recovering/Resolving]
  - Pain in jaw [Recovering/Resolving]
  - Dyspnoea [Recovering/Resolving]

NARRATIVE: CASE EVENT DATE: 2015
